FAERS Safety Report 8501245-1 (Version None)
Quarter: 2012Q3

REPORT INFORMATION
  Report Type: 
  Country: None (occurrence: None)
  Receive Date: 20120710
  Receipt Date: 20120703
  Transmission Date: 20120928
  Serious: Yes (Hospitalization, Other)
  Sender: FDA-Public Use
  Company Number: JP-PFIZER INC-2012134116

PATIENT
  Age: 84 Year
  Sex: Female
  Weight: 43.3 kg

DRUGS (18)
  1. D ALFA [Concomitant]
     Dosage: 0.5 UG, ONCE DAILY
  2. LEVOTHYROXINE SODIUM [Concomitant]
     Dosage: UNK
  3. MAGMITT [Concomitant]
     Dosage: 500 MG, TWICE DAILY
     Dates: start: 20110920, end: 20111019
  4. MADOPAR [Concomitant]
     Dosage: 2 DF, 2X/DAY
     Route: 048
     Dates: start: 20110720, end: 20111019
  5. SENNOSIDE [Concomitant]
     Dosage: 36 MG, ONCE DAILY
     Dates: end: 20111019
  6. RADEN [Concomitant]
     Indication: MUSCULOSKELETAL PAIN
     Dosage: 150 MG, ONCE DAILY
     Dates: start: 20111004, end: 20111019
  7. IDOMETHINE [Concomitant]
     Dosage: UNK
  8. AMLODIPINE [Concomitant]
     Dosage: 5 MG, ONCE DAILY
  9. JUVELA N [Concomitant]
     Indication: MUSCULOSKELETAL PAIN
     Dosage: 100 MG, TWICE DAILY
     Route: 048
     Dates: start: 20110720, end: 20111003
  10. JUVELA N [Concomitant]
     Dosage: 200 MG, TWICE DAILY
     Route: 048
     Dates: start: 20111004, end: 20111019
  11. AMOBANTES [Concomitant]
     Dosage: 7.5 MG, ONCE DAILY
     Route: 048
     Dates: start: 20110720, end: 20111019
  12. CLARITHROMYCIN [Concomitant]
     Dosage: UNK
  13. DICLOFENAC SODIUM [Concomitant]
     Indication: MUSCULOSKELETAL PAIN
     Dosage: 25 MG, AS NEEDED
     Dates: start: 20111018
  14. ENALAPRIL MALEATE [Concomitant]
     Dosage: 5 MG, ONCE DAILY
     Dates: start: 20110720
  15. MAGMITT [Concomitant]
     Dosage: 250 MG, TWICE DAILY
     Dates: start: 20110720, end: 20110919
  16. LYRICA [Suspect]
     Indication: MUSCULOSKELETAL PAIN
     Dosage: 25 MG, ONCE DAILY
     Route: 048
     Dates: start: 20111011, end: 20111019
  17. KENTAN [Concomitant]
     Dosage: 60 MG, THREE TIMES DAILY
     Route: 048
     Dates: start: 20110720, end: 20111019
  18. GENTAMICIN SULFATE [Concomitant]
     Dosage: UNK

REACTIONS (1)
  - LOSS OF CONSCIOUSNESS [None]
